FAERS Safety Report 15104608 (Version 2)
Quarter: 2018Q3

REPORT INFORMATION
  Report Type: Spontaneous
  Country: IN (occurrence: IN)
  Receive Date: 20180703
  Receipt Date: 20180720
  Transmission Date: 20181010
  Serious: Yes (Other)
  Sender: FDA-Public Use
  Company Number: IN-GEHC-2018CSU002421

PATIENT

DRUGS (1)
  1. OMNIPAQUE [Suspect]
     Active Substance: IOHEXOL
     Indication: MYOCARDIAL INFARCTION
     Dosage: 50 ML, SINGLE
     Route: 013
     Dates: start: 20180611, end: 20180611

REACTIONS (2)
  - Seizure [Recovered/Resolved]
  - Product physical issue [Recovered/Resolved]

NARRATIVE: CASE EVENT DATE: 20180611
